FAERS Safety Report 9147039 (Version 2)
Quarter: 2013Q4

REPORT INFORMATION
  Report Type: Report from Study
  Country: GB (occurrence: GB)
  Receive Date: 20130307
  Receipt Date: 20131218
  Transmission Date: 20140711
  Serious: Yes (Disabling)
  Sender: FDA-Public Use
  Company Number: GB-ROCHE-1198362

PATIENT
  Age: 35 Year
  Sex: 0

DRUGS (8)
  1. BEVACIZUMAB [Suspect]
     Indication: MALIGNANT MELANOMA
     Dosage: LAST DOSE PRIOR TO SAE WAS 666 MG ON 24/OCT/2011
     Route: 065
     Dates: start: 20101104
  2. FLUOXETINE [Concomitant]
     Indication: DEPRESSION
     Route: 065
     Dates: start: 20120201
  3. OMEPRAZOLE [Concomitant]
     Indication: DYSPEPSIA
     Route: 065
     Dates: start: 20110331
  4. LOPERAMIDE [Concomitant]
     Indication: DIARRHOEA
     Route: 065
     Dates: start: 20111003
  5. MORPHINE [Concomitant]
     Indication: ARTHRALGIA
  6. NAPROXEN [Concomitant]
     Indication: ARTHRALGIA
  7. PARACETAMOL [Concomitant]
     Indication: ARTHRALGIA
  8. TRAMADOL [Concomitant]
     Indication: ARTHRALGIA

REACTIONS (1)
  - Amnesia [Not Recovered/Not Resolved]
